FAERS Safety Report 6063919-4 (Version None)
Quarter: 2009Q1

REPORT INFORMATION
  Report Type: 
  Country: None (occurrence: None)
  Receive Date: 20090204
  Receipt Date: 20090122
  Transmission Date: 20090719
  Serious: Yes (Hospitalization, Other)
  Sender: FDA-Public Use
  Company Number: PHHY2009BR02617

PATIENT
  Age: 75 Year
  Sex: Male
  Weight: 101 kg

DRUGS (1)
  1. FORASEQ [Suspect]
     Indication: EMPHYSEMA
     Dosage: 12/400 MCG, 3 TIMES/DAY
     Dates: start: 20081001, end: 20090106

REACTIONS (6)
  - CATHETERISATION CARDIAC [None]
  - GENERALISED OEDEMA [None]
  - INFARCTION [None]
  - PNEUMONIA [None]
  - STENT PLACEMENT [None]
  - WEIGHT DECREASED [None]
